FAERS Safety Report 10035835 (Version 1)
Quarter: 2014Q1

REPORT INFORMATION
  Report Type: Spontaneous
  Country: US (occurrence: None)
  Receive Date: 20140306
  Receipt Date: 20140306
  Transmission Date: 20141002
  Serious: Yes (Disabling)
  Sender: FDA-Public Use
  Company Number: 163-21880-12123423

PATIENT
  Age: 76 Year
  Sex: Female
  Weight: 58.06 kg

DRUGS (11)
  1. REVLIMID [Suspect]
     Indication: PLASMA CELL MYELOMA
     Dosage: 1 IN 2 D
     Route: 048
     Dates: start: 20070608, end: 20121219
  2. CALCIUM 500 +D (CALCIUM D3 ^STADA^) [Concomitant]
  3. DEXAMETHASONE (DEXAMETHASONE) (6 MILLIGRAM, TABLETS) [Concomitant]
  4. OXYCODONE HCL (OXYCODONE HYDROCHLORIDE) (5 MILLIGRAM, TABLETS) [Concomitant]
  5. OXYCONTIN (OXYCODONE HYDROCHLORIDE) (20 MILLIGRAM, TABLETS) [Concomitant]
  6. POTASSIUM CHLORIDE (POTASSIUM CHLORIDE) (10 MILLIGRAM, TABLETS) [Concomitant]
  7. PROCHLORPERAZINE MALEATE (PROCHLORPERAZINE MALEATE) (10 MILLIGRAM, TABLETS) [Concomitant]
  8. SENOKOT (SENNA FRUIT) (8.6 MILLIGRAM, TABLETS) [Concomitant]
  9. TOPROL XL (METOPROLOL SUCCINATE) (50 MILLIGRAM, TABLETS) [Concomitant]
  10. VITAMIN C (ASCORBIC ACID) (500 MILLIGRAM, TABLETS) [Concomitant]
  11. WARFARIN SODIUM (WARFARIN SODIUM) (1 MILLIGRAM, TABLETS) [Concomitant]

REACTIONS (1)
  - Plasma cell myeloma [None]
